FAERS Safety Report 23212945 (Version 2)
Quarter: 2024Q1

REPORT INFORMATION
  Report Type: Spontaneous
  Country: US (occurrence: US)
  Receive Date: 20231121
  Receipt Date: 20240118
  Transmission Date: 20240410
  Serious: Yes (Other)
  Sender: FDA-Public Use
  Company Number: US-PFIZER INC-202300376921

PATIENT
  Age: 63 Year
  Sex: Female
  Weight: 75.283 kg

DRUGS (1)
  1. XELJANZ XR [Suspect]
     Active Substance: TOFACITINIB CITRATE
     Indication: Rheumatoid arthritis
     Dosage: 11 MG ONCE DAILY
     Route: 048
     Dates: start: 20230830

REACTIONS (1)
  - Eye operation [Unknown]

NARRATIVE: CASE EVENT DATE: 20231101
